FAERS Safety Report 14358276 (Version 1)
Quarter: 2018Q1

REPORT INFORMATION
  Report Type: Spontaneous
  Country: US (occurrence: US)
  Receive Date: 20180105
  Receipt Date: 20180105
  Transmission Date: 20180509
  Serious: No
  Sender: FDA-Public Use
  Company Number: US-SA-2017SA200368

PATIENT
  Sex: Male

DRUGS (1)
  1. DUPIXENT [Suspect]
     Active Substance: DUPILUMAB
     Route: 058
     Dates: start: 20171006, end: 20171006

REACTIONS (3)
  - Pruritus [Unknown]
  - Urticaria [Unknown]
  - Urticaria [Unknown]

NARRATIVE: CASE EVENT DATE: 20171009
